FAERS Safety Report 15335671 (Version 1)
Quarter: 2018Q3

REPORT INFORMATION
  Report Type: Spontaneous
  Country: US (occurrence: US)
  Receive Date: 20180830
  Receipt Date: 20180830
  Transmission Date: 20181010
  Serious: Yes (Other)
  Sender: FDA-Public Use
  Company Number: US-JNJFOC-20180822478

PATIENT
  Age: 70 Year
  Sex: Male

DRUGS (5)
  1. ZYTIGA [Suspect]
     Active Substance: ABIRATERONE ACETATE
     Indication: PROSTATE CANCER
     Route: 048
     Dates: start: 201805
  2. HIPREX [Concomitant]
     Active Substance: METHENAMINE HIPPURATE
     Indication: INFECTION PROPHYLAXIS
     Dosage: TUESDAY, THURSDAY, SATURDAY, SUNDAY
     Route: 048
  3. ZYTIGA [Suspect]
     Active Substance: ABIRATERONE ACETATE
     Indication: PROSTATE CANCER
     Route: 048
     Dates: end: 2017
  4. CEFTIN [Concomitant]
     Active Substance: CEFUROXIME AXETIL
     Dosage: MONDAY, WEDNESDAY, FRIDAY
     Route: 048
  5. PROPANOLOL [Concomitant]
     Active Substance: PROPRANOLOL HYDROCHLORIDE
     Indication: BLOOD PRESSURE MEASUREMENT
     Route: 048

REACTIONS (5)
  - Drug effect decreased [Unknown]
  - Lung neoplasm malignant [Unknown]
  - Product storage error [Unknown]
  - Prostatic specific antigen increased [Recovering/Resolving]
  - Hypertension [Unknown]

NARRATIVE: CASE EVENT DATE: 201711
